FAERS Safety Report 12094472 (Version 1)
Quarter: 2016Q1

REPORT INFORMATION
  Report Type: Spontaneous
  Country: BR (occurrence: BR)
  Receive Date: 20160219
  Receipt Date: 20160219
  Transmission Date: 20160526
  Serious: Yes (Other)
  Sender: FDA-Public Use
  Company Number: BR-PFIZER INC-2016073696

PATIENT
  Age: 70 Year
  Sex: Female
  Weight: 69 kg

DRUGS (4)
  1. LYRICA [Suspect]
     Active Substance: PREGABALIN
     Indication: SPINAL PAIN
     Dosage: ONE ^TABLET^ (75 MG), DAILY
     Dates: end: 201601
  2. LYRICA [Suspect]
     Active Substance: PREGABALIN
     Dosage: 75MG, 2X/DAY (IN THE MORNING AND AFTERNOON)
     Dates: start: 201601, end: 201601
  3. LOSARTAN. [Concomitant]
     Active Substance: LOSARTAN
     Dosage: IN THE MORNING AND A NIGHT
     Route: 048
  4. LYRICA [Suspect]
     Active Substance: PREGABALIN
     Dosage: 75MG IN THE MORNING AND 150MG AT NIGHT
     Dates: start: 201601

REACTIONS (8)
  - Depressed mood [Not Recovered/Not Resolved]
  - Drug ineffective for unapproved indication [Not Recovered/Not Resolved]
  - Spinal column injury [Not Recovered/Not Resolved]
  - Hypoaesthesia [Not Recovered/Not Resolved]
  - Pain [Not Recovered/Not Resolved]
  - Fall [Recovered/Resolved]
  - Gait disturbance [Not Recovered/Not Resolved]
  - Nervousness [Not Recovered/Not Resolved]

NARRATIVE: CASE EVENT DATE: 201601
